FAERS Safety Report 22144795 (Version 6)
Quarter: 2023Q4

REPORT INFORMATION
  Report Type: Report from Study
  Country: US (occurrence: US)
  Receive Date: 20230328
  Receipt Date: 20231010
  Transmission Date: 20240109
  Serious: Yes (Other)
  Sender: FDA-Public Use
  Company Number: US-UCBSA-2023012191

PATIENT
  Sex: Female

DRUGS (2)
  1. CERTOLIZUMAB PEGOL [Suspect]
     Active Substance: CERTOLIZUMAB PEGOL
     Indication: Psoriatic arthropathy
     Dosage: 200 MILLIGRAM, EV 2 WEEKS(QOW)
     Route: 058
     Dates: start: 20221123, end: 20231005
  2. CERTOLIZUMAB PEGOL [Suspect]
     Active Substance: CERTOLIZUMAB PEGOL
     Dosage: 400 MILLIGRAMS, UNK
     Route: 058

REACTIONS (12)
  - Psoriatic arthropathy [Not Recovered/Not Resolved]
  - COVID-19 [Recovered/Resolved]
  - Pain [Not Recovered/Not Resolved]
  - Injection site eczema [Not Recovered/Not Resolved]
  - Injection site pruritus [Not Recovered/Not Resolved]
  - Eczema [Unknown]
  - Therapeutic response shortened [Unknown]
  - Needle issue [Unknown]
  - Inappropriate schedule of product administration [Unknown]
  - Product quality issue [Unknown]
  - Intentional dose omission [Unknown]
  - Drug ineffective [Unknown]

NARRATIVE: CASE EVENT DATE: 20230101
